FAERS Safety Report 9648679 (Version 1)
Quarter: 2013Q4

REPORT INFORMATION
  Report Type: Spontaneous
  Country: SG (occurrence: SG)
  Receive Date: 20131028
  Receipt Date: 20131028
  Transmission Date: 20140711
  Serious: Yes (Hospitalization)
  Sender: FDA-Public Use
  Company Number: SG-PFIZER INC-2013302996

PATIENT
  Age: 61 Year
  Sex: Female
  Weight: 67.5 kg

DRUGS (1)
  1. CARBOPLATIN [Suspect]
     Dosage: 590 MG, UNK
     Route: 042
     Dates: start: 20130108, end: 20130108

REACTIONS (4)
  - Bronchospasm [Recovered/Resolved]
  - Rash [Recovered/Resolved]
  - Flushing [Recovered/Resolved]
  - Chest discomfort [Recovered/Resolved]
